FAERS Safety Report 8545833-5 (Version None)
Quarter: 2012Q3

REPORT INFORMATION
  Report Type: 
  Country: None (occurrence: None)
  Receive Date: 20120727
  Receipt Date: 20111110
  Transmission Date: 20120928
  Serious: No
  Sender: FDA-Public Use
  Company Number: US-ASTRAZENECA-2011SE68584

PATIENT
  Age: 77 Year
  Sex: Male
  Weight: 68 kg

DRUGS (8)
  1. SEROQUEL XR [Suspect]
     Indication: SLEEP DISORDER
     Route: 048
     Dates: start: 20110518
  2. LISINOPRIL [Concomitant]
  3. LAXATIVE [Concomitant]
  4. SEROQUEL XR [Suspect]
     Indication: BIPOLAR DISORDER
     Route: 048
     Dates: start: 20110518
  5. IMDUR [Concomitant]
  6. LOVASTATIN [Concomitant]
  7. TRILEPTAL [Concomitant]
  8. WARFARIN SODIUM [Concomitant]

REACTIONS (2)
  - OFF LABEL USE [None]
  - HEARING IMPAIRED [None]
